FAERS Safety Report 14661978 (Version 1)
Quarter: 2018Q1

REPORT INFORMATION
  Report Type: Spontaneous
  Country: US (occurrence: US)
  Receive Date: 20180320
  Receipt Date: 20180320
  Transmission Date: 20180509
  Serious: No
  Sender: FDA-Public Use
  Company Number: US-BIOGEN-2017BI00385953

PATIENT
  Age: 42 Year
  Sex: Female

DRUGS (3)
  1. ZINBRYTA [Suspect]
     Active Substance: DACLIZUMAB
     Indication: MULTIPLE SCLEROSIS
     Route: 058
     Dates: start: 201704
  2. NITROUS OXIDE. [Concomitant]
     Active Substance: NITROUS OXIDE
     Indication: PRODUCT USED FOR UNKNOWN INDICATION
     Route: 065
  3. ZINBRYTA [Suspect]
     Active Substance: DACLIZUMAB
     Route: 058
     Dates: start: 20170403

REACTIONS (18)
  - Fatigue [Not Recovered/Not Resolved]
  - Anger [Not Recovered/Not Resolved]
  - Agitation [Unknown]
  - Injection site pain [Recovered/Resolved]
  - Influenza like illness [Recovered/Resolved]
  - Drug ineffective [Recovered/Resolved]
  - Depressed mood [Not Recovered/Not Resolved]
  - Central nervous system lesion [Not Recovered/Not Resolved]
  - Pain [Unknown]
  - Memory impairment [Not Recovered/Not Resolved]
  - Muscle spasms [Recovered/Resolved]
  - Mood altered [Unknown]
  - Irritability [Not Recovered/Not Resolved]
  - Amnesia [Not Recovered/Not Resolved]
  - Abnormal behaviour [Unknown]
  - General symptom [Unknown]
  - Aggression [Not Recovered/Not Resolved]
  - Apathy [Not Recovered/Not Resolved]

NARRATIVE: CASE EVENT DATE: 20170404
